FAERS Safety Report 7728120-4 (Version None)
Quarter: 2011Q3

REPORT INFORMATION
  Report Type: 
  Country: None (occurrence: None)
  Receive Date: 20110905
  Receipt Date: 20110830
  Transmission Date: 20111222
  Serious: Yes (Other)
  Sender: FDA-Public Use
  Company Number: CHPA2011US11698

PATIENT
  Age: 73 Year
  Sex: Male

DRUGS (3)
  1. VOLTAREN [Suspect]
     Dosage: THIN LAYER, UNK
     Route: 061
     Dates: start: 20110818, end: 20110828
  2. VOLTAREN [Suspect]
     Indication: ARTHRITIS
     Dosage: THIN LAYER, PERIODICALLY
     Route: 061
  3. VOLTAREN [Suspect]
     Indication: MUSCULOSKELETAL CHEST PAIN
     Dosage: THIN LAYER, UNK
     Route: 061

REACTIONS (7)
  - THERAPEUTIC RESPONSE UNEXPECTED [None]
  - DRUG ADMINISTERED AT INAPPROPRIATE SITE [None]
  - WRONG TECHNIQUE IN DRUG USAGE PROCESS [None]
  - OFF LABEL USE [None]
  - RIB FRACTURE [None]
  - HYPERSENSITIVITY [None]
  - RASH [None]
